FAERS Safety Report 5889281-5 (Version None)
Quarter: 2008Q3

REPORT INFORMATION
  Report Type: 
  Country: None (occurrence: None)
  Receive Date: 20080919
  Receipt Date: 20080916
  Transmission Date: 20090109
  Serious: Yes (Hospitalization)
  Sender: FDA-Public Use
  Company Number: AU-EISAI MEDICAL RESEARCH-E2020-03190-SPO-AU

PATIENT
  Age: 84 Year
  Sex: Male

DRUGS (6)
  1. ARICEPT [Suspect]
     Indication: DEMENTIA
     Route: 048
     Dates: start: 20080501, end: 20080701
  2. ASPIRIN [Concomitant]
     Indication: MYOCARDIAL ISCHAEMIA
     Route: 048
  3. COVERSYL [Concomitant]
     Indication: HYPERTENSION
     Route: 048
  4. COVERSYL [Concomitant]
     Indication: MYOCARDIAL ISCHAEMIA
  5. PRESSIN [Concomitant]
     Indication: BENIGN PROSTATIC HYPERPLASIA
     Route: 048
  6. CELBREX [Concomitant]
     Indication: ARTHRITIS
     Route: 048

REACTIONS (4)
  - BIFASCICULAR BLOCK [None]
  - DELIRIUM [None]
  - FALL [None]
  - MYOCARDIAL INFARCTION [None]
